FAERS Safety Report 24211409 (Version 1)
Quarter: 2024Q3

REPORT INFORMATION
  Report Type: Spontaneous
  Country: US (occurrence: None)
  Receive Date: 20240813
  Receipt Date: 20240813
  Transmission Date: 20241017
  Serious: Yes (Other)
  Sender: Public
  Company Number: None

PATIENT
  Age: 61 Year
  Sex: Male
  Weight: 109.35 kg

DRUGS (1)
  1. CYANOCOBALAMIN\GLYCINE\TIRZEPATIDE [Suspect]
     Active Substance: CYANOCOBALAMIN\GLYCINE\TIRZEPATIDE
     Indication: Weight decreased
     Dosage: 4 INJECTIONS ONCE WEEKLY INJECT SUBCUTANEOUS
     Route: 058
     Dates: start: 20240201, end: 20240731

REACTIONS (9)
  - Weight increased [None]
  - Fatigue [None]
  - Rash [None]
  - Dysphagia [None]
  - Fatigue [None]
  - Pruritus [None]
  - Urticaria [None]
  - Erythema [None]
  - Product quality issue [None]

NARRATIVE: CASE EVENT DATE: 20240731
